FAERS Safety Report 21568772 (Version 2)
Quarter: 2022Q4

REPORT INFORMATION
  Report Type: Report from Study
  Country: US (occurrence: US)
  Receive Date: 20221108
  Receipt Date: 20221110
  Transmission Date: 20230112
  Serious: Yes (Hospitalization)
  Sender: FDA-Public Use
  Company Number: US-JNJFOC-20221100910

PATIENT
  Age: 57 Year
  Sex: Female
  Weight: 69.5 kg

DRUGS (5)
  1. EPOPROSTENOL SODIUM [Suspect]
     Active Substance: EPOPROSTENOL SODIUM
     Indication: Pulmonary arterial hypertension
     Dosage: VELETRI DOSE 44 NG/KG/MIN
     Route: 042
  2. AMBRISENTAN [Concomitant]
     Active Substance: AMBRISENTAN
  3. XARELTO [Concomitant]
     Active Substance: RIVAROXABAN
  4. TADALAFIL [Concomitant]
     Active Substance: TADALAFIL
  5. TREPROSTINIL [Concomitant]
     Active Substance: TREPROSTINIL

REACTIONS (4)
  - Vascular device occlusion [Unknown]
  - Nausea [Unknown]
  - Dizziness [Unknown]
  - Product administration interrupted [Unknown]

NARRATIVE: CASE EVENT DATE: 20221029
